FAERS Safety Report 10113687 (Version 2)
Quarter: 2015Q1

REPORT INFORMATION
  Report Type: Other
  Country: US (occurrence: US)
  Receive Date: 20140425
  Receipt Date: 20150210
  Transmission Date: 20150720
  Serious: Yes (Hospitalization, Other)
  Sender: FDA-Public Use
  Company Number: US-GSKPPD-2014GSK013616

PATIENT
  Age: 48 Year
  Sex: Male

DRUGS (6)
  1. ALTACE [Concomitant]
     Active Substance: RAMIPRIL
     Dosage: UNITS NOT SPECIFIED
  2. AVANDIA [Suspect]
     Active Substance: ROSIGLITAZONE MALEATE
     Indication: DIABETES MELLITUS
     Route: 048
  3. COUMADIN [Concomitant]
     Active Substance: WARFARIN SODIUM
  4. ZOCOR [Concomitant]
     Active Substance: SIMVASTATIN
     Dosage: UNITS NOT SPECIFIED
  5. ASA [Concomitant]
     Active Substance: ASPIRIN
     Dosage: UNITS NOT SPECIFIED
  6. TRICOR [Concomitant]
     Active Substance: FENOFIBRATE
     Dosage: UNITS NOT SPECIFIED

REACTIONS (3)
  - Transient ischaemic attack [Recovered/Resolved]
  - Mitral valve prolapse [Recovered/Resolved]
  - Silent myocardial infarction [Unknown]

NARRATIVE: CASE EVENT DATE: 20050426
